FAERS Safety Report 6565860-7 (Version None)
Quarter: 2010Q1

REPORT INFORMATION
  Report Type: 
  Country: None (occurrence: None)
  Receive Date: 20100126
  Receipt Date: 20100119
  Transmission Date: 20100710
  Serious: Yes (Hospitalization)
  Sender: FDA-Public Use
  Company Number: WAES 1001USA01818

PATIENT
  Age: 71 Year
  Sex: Female

DRUGS (7)
  1. CAP VORINOSTAT [Suspect]
     Indication: EXTRANODAL MARGINAL ZONE B-CELL LYMPHOMA (MALT TYPE)
     Dosage: 200 MG/BID, PO
     Route: 048
     Dates: start: 20090821, end: 20090822
  2. BAKTAR [Concomitant]
  3. METHYCOBAL [Concomitant]
  4. MYSLEE [Concomitant]
  5. TAKEPRON OD [Concomitant]
  6. LANSOPRAZOLE [Concomitant]
  7. WHITE MULBERRY [Concomitant]

REACTIONS (13)
  - ANGIOPATHY [None]
  - CONDITION AGGRAVATED [None]
  - DECREASED APPETITE [None]
  - DYSPNOEA EXERTIONAL [None]
  - HAEMOGLOBIN DECREASED [None]
  - HYPERTENSION [None]
  - IATROGENIC INJURY [None]
  - LEUKOPENIA [None]
  - NAUSEA [None]
  - PLEURAL EFFUSION [None]
  - PLEURAL HAEMORRHAGE [None]
  - THROMBOCYTOPENIA [None]
  - WEIGHT DECREASED [None]
